FAERS Safety Report 7531591-X (Version None)
Quarter: 2011Q2

REPORT INFORMATION
  Report Type: 
  Country: None (occurrence: None)
  Receive Date: 20110601
  Receipt Date: 20110524
  Transmission Date: 20111010
  Serious: Yes (Life-Threatening, Other)
  Sender: FDA-Public Use
  Company Number: 2006JP001624

PATIENT
  Age: 27 Year
  Sex: Female
  Weight: 38 kg

DRUGS (21)
  1. PROGRAF [Suspect]
     Indication: IMMUNOSUPPRESSION
     Dosage: 0.10, 0.04 MG/KG
     Dates: start: 20040316, end: 20051101
  2. PROGRAF [Suspect]
     Indication: SMALL INTESTINE TRANSPLANT
     Dosage: 0.10, 0.04 MG/KG
     Dates: start: 20040316, end: 20051101
  3. PROGRAF [Suspect]
     Indication: IMMUNOSUPPRESSION
     Dosage: 0.10, 0.04 MG/KG
     Dates: start: 20051101
  4. PROGRAF [Suspect]
     Indication: SMALL INTESTINE TRANSPLANT
     Dosage: 0.10, 0.04 MG/KG
     Dates: start: 20051101
  5. ZENAPAX [Concomitant]
  6. FAMOTIDINE [Concomitant]
  7. RACOL (NITRIENTS NOS) [Concomitant]
  8. SIROLIMUS [Concomitant]
  9. METHYLPREDNISOLONE [Concomitant]
  10. BIO TYHREE (BACTERIA NOS) [Concomitant]
  11. RABEPRAZOLE SODIUM [Concomitant]
  12. PROGRAF [Suspect]
     Indication: SMALL INTESTINE TRANSPLANT
     Dosage: O.3 MG/KG, ORAL
     Route: 048
  13. PROGRAF [Suspect]
     Indication: IMMUNOSUPPRESSION
     Dosage: O.3 MG/KG, ORAL
     Route: 048
  14. LOPERAMIDE HCL [Concomitant]
  15. ENTERONON R (STREPTOCOCCUS FAECALIS, LACTOBACILLUS ACIDOPHILUS, STREPT [Concomitant]
  16. TAKEPRON (LANSOPRAZOLE) [Concomitant]
  17. MEDROL [Concomitant]
  18. REMICADE [Concomitant]
  19. SIMULECT [Concomitant]
  20. COTRIM [Concomitant]
  21. ALINAMIN F (FURSULTIAMINE) [Concomitant]

REACTIONS (10)
  - DRUG INEFFECTIVE FOR UNAPPROVED INDICATION [None]
  - DEVICE RELATED SEPSIS [None]
  - HYPERCHLORAEMIA [None]
  - TRANSPLANT REJECTION [None]
  - ESCHERICHIA SEPSIS [None]
  - DEHYDRATION [None]
  - METABOLIC ACIDOSIS [None]
  - HYPOMAGNESAEMIA [None]
  - KLEBSIELLA SEPSIS [None]
  - RENAL IMPAIRMENT [None]
